FAERS Safety Report 8179209-X (Version None)
Quarter: 2012Q1

REPORT INFORMATION
  Report Type: 
  Country: None (occurrence: None)
  Receive Date: 20120302
  Receipt Date: 20120223
  Transmission Date: 20120608
  Serious: No
  Sender: FDA-Public Use
  Company Number: US-PFIZER INC-2012049674

PATIENT
  Sex: Female

DRUGS (18)
  1. FLONASE [Concomitant]
     Dosage: 1 DF, 2X/DAY
  2. LOVAZA [Concomitant]
     Dosage: 1 G, 4X/DAY
  3. TRAZODONE HYDROCHLORIDE [Concomitant]
     Dosage: 50 MG, 3X/DAY
  4. BUTALBITAL AND CAFFEINE AND PARACETAMOL [Concomitant]
  5. BENZATROPINE MESILATE [Concomitant]
     Dosage: 0.5 MG, 3X/DAY
  6. DARVOCET-N 50 [Concomitant]
     Dosage: 100MG/650 MG EVERY 6 HOURS AS NEEDED
  7. DEPO-PROVERA [Suspect]
     Dosage: 150 ML, EVERY 3 MONTHS
  8. EFFEXOR XR [Suspect]
     Dosage: 150 MG, UNK
  9. XANAX [Suspect]
     Indication: ANXIETY
     Dosage: 1 MG, AS NEEDED
  10. AMBIEN [Concomitant]
     Dosage: 10 MG, AS NEEDED
  11. RANITIDINE [Concomitant]
     Dosage: 300 MG, 1X/DAY IN THE A.M.
  12. GEODON [Suspect]
     Dosage: 60 MG, 2X/DAY
  13. WELLBUTRIN SR [Concomitant]
     Dosage: 150 MG, 1X/DAY
  14. DEXLANSOPRAZOLE [Concomitant]
     Dosage: 60 MG, 1X/DAY
  15. FLEXERIL [Concomitant]
     Indication: MUSCLE SPASMS
     Dosage: 10 MG, 3X/DAY AS NECESSARY
  16. ERYTHROMYCIN [Concomitant]
  17. RELPAX [Suspect]
     Indication: MIGRAINE
     Dosage: 40 MG, 1X/DAY
     Route: 048
  18. ULTRAM [Concomitant]
     Dosage: 50 MG, EVERY 6 HOURS

REACTIONS (4)
  - DRY SKIN [None]
  - ANXIETY [None]
  - DEPRESSION [None]
  - BACK PAIN [None]
